FAERS Safety Report 7337712-6 (Version None)
Quarter: 2011Q1

REPORT INFORMATION
  Report Type: 
  Country: None (occurrence: None)
  Receive Date: 20110303
  Receipt Date: 20110303
  Transmission Date: 20110831
  Serious: Yes (Other)
  Sender: FDA-Public Use
  Company Number: None

PATIENT
  Sex: Female
  Weight: 91.173 kg

DRUGS (2)
  1. PROPRANOLOL [Suspect]
     Indication: HYPERTENSIVE CRISIS
     Dosage: 20MG ONCE BID PO
     Route: 048
     Dates: start: 20071226, end: 20080110
  2. METOPROLOL [Suspect]
     Dosage: 100 MG ONCE BID PO
     Route: 048
     Dates: start: 20080331

REACTIONS (3)
  - DRUG INEFFECTIVE [None]
  - MIGRAINE [None]
  - BLOOD PRESSURE INCREASED [None]
